FAERS Safety Report 9201064 (Version 2)
Quarter: 2013Q2

REPORT INFORMATION
  Report Type: Report from Study
  Country: AU (occurrence: AU)
  Receive Date: 20130401
  Receipt Date: 20130603
  Transmission Date: 20140414
  Serious: Yes (Hospitalization)
  Sender: FDA-Public Use
  Company Number: AU-CELGENEUS-008-21660-13033222

PATIENT
  Age: 64 Year
  Sex: Female
  Weight: 95 kg

DRUGS (2)
  1. ABRAXANE [Suspect]
     Indication: PANCREATIC CARCINOMA
     Dosage: 262 MILLIGRAM/SQ. METER
     Route: 041
     Dates: start: 20130306, end: 20130320
  2. GEMCITABINE [Suspect]
     Indication: PANCREATIC CARCINOMA
     Dosage: 2100 MILLIGRAM/SQ. METER
     Route: 065
     Dates: start: 20130306, end: 20130320

REACTIONS (1)
  - Administration site infection [Recovered/Resolved]
